FAERS Safety Report 5903839-6 (Version None)
Quarter: 2008Q3

REPORT INFORMATION
  Report Type: 
  Country: None (occurrence: None)
  Receive Date: 20080919
  Receipt Date: 20080618
  Transmission Date: 20090109
  Serious: No
  Sender: FDA-Public Use
  Company Number: US-WYE-H04602608

PATIENT
  Age: 43 Year
  Sex: Female
  Weight: 52.21 kg

DRUGS (1)
  1. PRISTIQ [Suspect]
     Indication: DEPRESSION
     Dosage: 50 MG 1X PER 1 DAY, ORAL
     Route: 048
     Dates: start: 20080604, end: 20080617

REACTIONS (4)
  - CHILLS [None]
  - FEELING ABNORMAL [None]
  - OEDEMA PERIPHERAL [None]
  - PARAESTHESIA [None]
